FAERS Safety Report 7914849-1 (Version None)
Quarter: 2011Q4

REPORT INFORMATION
  Report Type: 
  Country: None (occurrence: None)
  Receive Date: 20111115
  Receipt Date: 20111109
  Transmission Date: 20120403
  Serious: Yes (Hospitalization)
  Sender: FDA-Public Use
  Company Number: FR-SANOFI-AVENTIS-2011SA073695

PATIENT
  Age: 75 Year
  Sex: Female

DRUGS (9)
  1. BISOPROLOL FUMARATE [Suspect]
     Route: 048
     Dates: end: 20110920
  2. CLONAZEPAM [Suspect]
     Route: 048
     Dates: end: 20110920
  3. ESIDRIX [Suspect]
     Route: 048
  4. LANTUS [Suspect]
     Indication: TYPE 2 DIABETES MELLITUS
     Route: 058
  5. CLONAZEPAM [Suspect]
     Indication: SUICIDE ATTEMPT
     Route: 065
     Dates: start: 20110920, end: 20110920
  6. VALSARTAN [Suspect]
     Route: 048
  7. BISOPROLOL FUMARATE [Suspect]
     Route: 048
     Dates: start: 20110920, end: 20110920
  8. CLONAZEPAM [Suspect]
     Indication: INSOMNIA
     Route: 065
     Dates: start: 20110920, end: 20110920
  9. CLONAZEPAM [Suspect]
     Route: 048
     Dates: end: 20110920

REACTIONS (4)
  - COMA [None]
  - SUICIDE ATTEMPT [None]
  - CARDIOGENIC SHOCK [None]
  - CARDIAC ARREST [None]
